FAERS Safety Report 10975492 (Version 2)
Quarter: 2015Q2

REPORT INFORMATION
  Report Type: Spontaneous
  Country: US (occurrence: US)
  Receive Date: 20150401
  Receipt Date: 20150409
  Transmission Date: 20150821
  Serious: Yes (Other)
  Sender: FDA-Public Use
  Company Number: US-UNITED THERAPEUTICS-UNT-2015-003434

PATIENT
  Age: 69 Year
  Sex: Male
  Weight: 79.37 kg

DRUGS (5)
  1. TRACLEER [Concomitant]
     Active Substance: BOSENTAN\BOSENTAN MONOHYDRATE
     Indication: PRODUCT USED FOR UNKNOWN INDICATION
  2. ORENITRAM [Suspect]
     Active Substance: TREPROSTINIL
     Indication: PULMONARY ARTERIAL HYPERTENSION
     Dosage: 0.625 MG, TID
     Route: 048
     Dates: start: 20140923
  3. ORENITRAM [Suspect]
     Active Substance: TREPROSTINIL
     Dosage: .75 MG, TID
     Route: 048
     Dates: start: 20140923
  4. WARFARIN [Concomitant]
     Active Substance: WARFARIN
     Indication: PRODUCT USED FOR UNKNOWN INDICATION
  5. ORENITRAM [Suspect]
     Active Substance: TREPROSTINIL
     Dosage: UNK
     Route: 048
     Dates: start: 20141023

REACTIONS (4)
  - Blood urine present [Unknown]
  - Hypertension [Unknown]
  - Renal failure [Unknown]
  - Oedema [Unknown]

NARRATIVE: CASE EVENT DATE: 201503
